FAERS Safety Report 26212905 (Version 1)
Quarter: 2025Q4

REPORT INFORMATION
  Report Type: Spontaneous
  Country: IL (occurrence: None)
  Receive Date: 20251230
  Receipt Date: 20251230
  Transmission Date: 20260118
  Serious: Yes (Other)
  Sender: ENDO
  Company Number: IL-ENDO USA, INC.-2025-002491

PATIENT
  Age: 14 Year
  Sex: Male

DRUGS (1)
  1. DOXYCYCLINE [Suspect]
     Active Substance: DOXYCYCLINE
     Indication: Evidence based treatment
     Dosage: UNK UNKNOWN, INFUSION

REACTIONS (1)
  - Jarisch-Herxheimer reaction [Recovered/Resolved]
